FAERS Safety Report 9281034 (Version 1)
Quarter: 2013Q2

REPORT INFORMATION
  Report Type: Spontaneous
  Country: US (occurrence: None)
  Receive Date: 20130508
  Receipt Date: 20130508
  Transmission Date: 20140414
  Serious: Yes (Hospitalization)
  Sender: FDA-Public Use
  Company Number: None

PATIENT
  Age: 63 Year
  Sex: Male

DRUGS (1)
  1. XELODA [Suspect]
     Indication: OESOPHAGEAL CARCINOMA
     Dosage: 2000MG UD PO
     Route: 048
     Dates: start: 20130218, end: 20130401

REACTIONS (8)
  - Constipation [None]
  - Diarrhoea [None]
  - Dry skin [None]
  - Skin exfoliation [None]
  - Electrolyte imbalance [None]
  - Pulmonary embolism [None]
  - White blood cell count decreased [None]
  - Impaired healing [None]
